FAERS Safety Report 19133443 (Version 1)
Quarter: 2021Q2

REPORT INFORMATION
  Report Type: Spontaneous
  Country: US (occurrence: US)
  Receive Date: 20210413
  Receipt Date: 20210413
  Transmission Date: 20210717
  Serious: Yes (Disabling)
  Sender: FDA-Public Use
  Company Number: None

PATIENT
  Age: 55 Year
  Sex: Female
  Weight: 79.2 kg

DRUGS (5)
  1. FISH OIL [Concomitant]
     Active Substance: FISH OIL
  2. NATURE?THROID [Concomitant]
     Active Substance: THYROID, PORCINE
  3. VITAMIN D [Concomitant]
     Active Substance: VITAMIN D NOS
  4. MAGNESIUM [Concomitant]
     Active Substance: MAGNESIUM
  5. NP THYROID [Suspect]
     Active Substance: LEVOTHYROXINE\LIOTHYRONINE
     Indication: HYPOTHYROIDISM
     Route: 048
     Dates: start: 20201120, end: 20210401

REACTIONS (1)
  - Chondrocalcinosis pyrophosphate [None]

NARRATIVE: CASE EVENT DATE: 20201226
